FAERS Safety Report 12732618 (Version 2)
Quarter: 2016Q4

REPORT INFORMATION
  Report Type: Spontaneous
  Country: US (occurrence: US)
  Receive Date: 20160912
  Receipt Date: 20161212
  Transmission Date: 20170207
  Serious: No
  Sender: FDA-Public Use
  Company Number: US-JNJFOC-20160818691

PATIENT
  Age: 47 Year
  Sex: Female
  Weight: 91.17 kg

DRUGS (2)
  1. XARELTO [Suspect]
     Active Substance: RIVAROXABAN
     Indication: PULMONARY EMBOLISM
     Route: 048
     Dates: start: 20130606, end: 20151002
  2. XARELTO [Suspect]
     Active Substance: RIVAROXABAN
     Indication: DEEP VEIN THROMBOSIS
     Route: 048
     Dates: start: 20130606, end: 20151002

REACTIONS (3)
  - Epistaxis [Unknown]
  - Anaemia [Unknown]
  - Eye contusion [Unknown]

NARRATIVE: CASE EVENT DATE: 20140421
